FAERS Safety Report 5945849-9 (Version None)
Quarter: 2008Q4

REPORT INFORMATION
  Report Type: 
  Country: None (occurrence: None)
  Receive Date: 20081110
  Receipt Date: 20081017
  Transmission Date: 20090506
  Serious: No
  Sender: FDA-Public Use
  Company Number: US-BAYER-US-2007-020673

PATIENT
  Age: 25 Year
  Sex: Male

DRUGS (7)
  1. CAMPATH [Suspect]
     Indication: T-CELL LYMPHOMA
     Dosage: UNIT DOSE: 3 MG
     Route: 042
     Dates: start: 20070529, end: 20070529
  2. CAMPATH [Suspect]
     Dosage: UNIT DOSE: 10 MG
     Route: 042
     Dates: start: 20070530, end: 20070530
  3. CAMPATH [Suspect]
     Dosage: UNIT DOSE: 30 MG
     Route: 042
     Dates: start: 20070531, end: 20070531
  4. CLOLAR [Suspect]
     Indication: T-CELL LYMPHOMA
     Route: 042
     Dates: start: 20070530
  5. CYTARABINE [Suspect]
     Indication: T-CELL LYMPHOMA
     Dates: start: 20070530
  6. HYDROXYZINE [Concomitant]
  7. CHLORAMBUCIL [Concomitant]

REACTIONS (1)
  - GENERALISED ERYTHEMA [None]
